FAERS Safety Report 20430377 (Version 1)
Quarter: 2022Q1

REPORT INFORMATION
  Report Type: Report from Study
  Country: US (occurrence: US)
  Receive Date: 20220204
  Receipt Date: 20220204
  Transmission Date: 20220423
  Serious: Yes (Life-Threatening, Hospitalization, Other)
  Sender: FDA-Public Use
  Company Number: DFCI 16-001

PATIENT

DRUGS (9)
  1. PEGASPARGASE [Suspect]
     Active Substance: PEGASPARGASE
     Indication: Acute lymphocytic leukaemia
     Dosage: 2500 IU/M2, Q14D
     Route: 042
     Dates: start: 20200129, end: 20200630
  2. TN UNSPECIFIED [Concomitant]
     Indication: Acute lymphocytic leukaemia
     Dosage: 1.5 MG/M2, D1
     Route: 042
     Dates: start: 20200227, end: 20200630
  3. TN UNSPECIFIED [Concomitant]
     Indication: Acute lymphocytic leukaemia
     Dosage: 6 MG/M2, DAY 1-25
     Route: 042
     Dates: start: 20200124, end: 20200407
  4. TN UNSPECIFIED [Concomitant]
     Indication: Acute lymphocytic leukaemia
     Dosage: 12 MG, Q9W
     Route: 037
     Dates: start: 20200210, end: 20200630
  5. TN UNSPECIFIED [Concomitant]
     Dosage: 30 MG/M2, DAY 1, 8, + 15
     Route: 042
     Dates: start: 20200519, end: 20200630
  6. TN UNSPECIFIED [Concomitant]
     Indication: Acute lymphocytic leukaemia
     Dosage: 40 MG, Q9W
     Route: 037
  7. TN UNSPECIFIED [Concomitant]
     Indication: Acute lymphocytic leukaemia
     Dosage: 15 MG, Q9W
     Route: 037
     Dates: start: 20200210, end: 20200630
  8. TN UNSPECIFIED [Concomitant]
     Indication: Acute lymphocytic leukaemia
     Dosage: 50 MG/M2, DAY 1-14
     Route: 048
     Dates: start: 20200318, end: 20200704
  9. TN UNSPECIFIED [Concomitant]
     Indication: Acute lymphocytic leukaemia
     Dosage: 5 G/M2, DAY 1 CONSOLIDATION IA
     Route: 042
     Dates: start: 20200407, end: 20200407

REACTIONS (4)
  - Pancreatitis acute [Not Recovered/Not Resolved]
  - Sepsis [Unknown]
  - Lipase increased [Unknown]
  - Vomiting [Unknown]

NARRATIVE: CASE EVENT DATE: 20200101
